FAERS Safety Report 6821575-9 (Version None)
Quarter: 2010Q3

REPORT INFORMATION
  Report Type: 
  Country: None (occurrence: None)
  Receive Date: 20100707
  Receipt Date: 20090524
  Transmission Date: 20110219
  Serious: No
  Sender: FDA-Public Use
  Company Number: US-PFIZER INC-2009192735

PATIENT
  Age: 10 Year
  Sex: Female

DRUGS (2)
  1. ZOLOFT [Suspect]
     Indication: ANXIETY DISORDER
     Dosage: 100 MG, 1X/DAY
  2. ZOLOFT [Suspect]
     Indication: SCHOOL REFUSAL

REACTIONS (2)
  - NASAL DISORDER [None]
  - STEREOTYPY [None]
